FAERS Safety Report 4476873-3 (Version None)
Quarter: 2004Q3

REPORT INFORMATION
  Report Type: 
  Country: None (occurrence: None)
  Receive Date: 20040923
  Receipt Date: 20040810
  Transmission Date: 20050211
  Serious: No
  Sender: FDA-Public Use
  Company Number: USA040670298

PATIENT
  Age: 72 Year
  Sex: Female

DRUGS (8)
  1. FORTEO [Suspect]
     Dates: start: 20040501
  2. XANAX [Concomitant]
  3. APO-METOPROLOL (METOPROLOL TARTRATE) [Concomitant]
  4. NEURONTIN [Concomitant]
  5. LEVOTHYRIOID (LEVOTHYROXINE SODIUM) [Concomitant]
  6. LIPITOR [Concomitant]
  7. DIOVAN (SIMVASTATIN) [Concomitant]
  8. CALCIUM WITH VITAMIN D [Concomitant]

REACTIONS (6)
  - ASTHENIA [None]
  - DIZZINESS [None]
  - DRUG INEFFECTIVE [None]
  - DYSPNOEA [None]
  - FALL [None]
  - HEADACHE [None]
